FAERS Safety Report 15742869 (Version 2)
Quarter: 2019Q2

REPORT INFORMATION
  Report Type: Spontaneous
  Country: FR (occurrence: FR)
  Receive Date: 20181219
  Receipt Date: 20190502
  Transmission Date: 20190711
  Serious: Yes (Hospitalization, Other)
  Sender: FDA-Public Use
  Company Number: FR-MYLANLABS-2018M1094460

PATIENT
  Age: 63 Year
  Sex: Male
  Weight: 64 kg

DRUGS (43)
  1. DEXAMETHASONE. [Suspect]
     Active Substance: DEXAMETHASONE
     Indication: PLASMA CELL MYELOMA
     Dosage: UNK
     Route: 065
     Dates: start: 20071210, end: 200804
  2. PARACETAMOL [Concomitant]
     Active Substance: ACETAMINOPHEN
     Indication: BONE PAIN
     Dosage: 500 MILLIGRAM
     Route: 048
     Dates: start: 201611
  3. EUCREAS [Concomitant]
     Active Substance: METFORMIN HYDROCHLORIDE\VILDAGLIPTIN
     Indication: DIABETES MELLITUS
     Dosage: UNK
     Route: 048
  4. BINOCRIT [Concomitant]
     Active Substance: ERYTHROPOIETIN
     Indication: ANAEMIA
     Dosage: UNK
     Route: 065
     Dates: start: 20160114, end: 20160603
  5. KARDEGIC [Concomitant]
     Active Substance: ASPIRIN DL-LYSINE
     Indication: THROMBOSIS PROPHYLAXIS
     Dosage: 75 MILLIGRAM
     Route: 065
     Dates: start: 20151217, end: 20160519
  6. LEDERFOLINE [Concomitant]
     Active Substance: LEUCOVORIN CALCIUM
     Indication: PROPHYLAXIS
     Dosage: 50 MILLIGRAM, QW
     Route: 048
     Dates: start: 20161202
  7. PANTOPRAZOLE [Concomitant]
     Active Substance: PANTOPRAZOLE
     Indication: PRODUCT USED FOR UNKNOWN INDICATION
     Dosage: 40 MILLIGRAM
     Route: 065
  8. OXYNORM [Concomitant]
     Active Substance: OXYCODONE HYDROCHLORIDE
     Indication: BONE PAIN
     Dosage: 20 MILLIGRAM
     Route: 048
     Dates: start: 20170121
  9. REVLIMID [Suspect]
     Active Substance: LENALIDOMIDE
     Indication: PLASMA CELL MYELOMA
     Dosage: 5 MILLIGRAM
     Route: 048
     Dates: start: 200803, end: 200804
  10. REVLIMID [Suspect]
     Active Substance: LENALIDOMIDE
     Dosage: 105 MILLIGRAM, 28D CYCLE (5 MILLIGRAM)
     Route: 048
     Dates: start: 20141027, end: 20160512
  11. HIZENTRA [Concomitant]
     Active Substance: HUMAN IMMUNOGLOBULIN G
     Indication: HYPOGAMMAGLOBULINAEMIA
     Dosage: 8 MILLIGRAM
     Route: 065
     Dates: start: 20151022, end: 20160603
  12. KARDEGIC [Concomitant]
     Active Substance: ASPIRIN DL-LYSINE
     Indication: CAROTID ARTERIOSCLEROSIS
  13. VALACICLOVIR [Concomitant]
     Active Substance: VALACYCLOVIR HYDROCHLORIDE
     Indication: INFECTION PROPHYLAXIS
     Dosage: 500 MILLIGRAM
     Route: 065
     Dates: start: 201307, end: 20160603
  14. CLOPIDOGREL                        /01220704/ [Concomitant]
     Active Substance: CLOPIDOGREL BESILATE
     Indication: TRANSIENT ISCHAEMIC ATTACK
     Dosage: 150 MILLIGRAM, QD
     Route: 048
  15. ALLOPURINOL. [Concomitant]
     Active Substance: ALLOPURINOL
     Indication: GOUT
     Dosage: 200 MILLIGRAM, QD
     Route: 048
  16. ATACAND [Concomitant]
     Active Substance: CANDESARTAN CILEXETIL
     Indication: HYPERTENSION
     Dosage: 16 MILLIGRAM, QD
     Route: 048
  17. BACTRIM [Concomitant]
     Active Substance: SULFAMETHOXAZOLE\TRIMETHOPRIM
     Indication: ANTIFUNGAL PROPHYLAXIS
     Dosage: UNK, QW
     Route: 048
     Dates: start: 20161202
  18. VALACICLOVIR [Concomitant]
     Active Substance: VALACYCLOVIR HYDROCHLORIDE
     Indication: INFECTION PROPHYLAXIS
     Dosage: 500 MILLIGRAM
     Route: 065
     Dates: start: 201307, end: 20160603
  19. DARATUMUMAB [Concomitant]
     Active Substance: DARATUMUMAB
     Dosage: 1072 UNK
     Dates: start: 20141027
  20. ADENURIC [Concomitant]
     Active Substance: FEBUXOSTAT
     Indication: RHEUMATOID ARTHRITIS
     Dosage: 80 MILLIGRAM
     Route: 065
     Dates: start: 200707, end: 20160603
  21. CEFTRIAXONE. [Concomitant]
     Active Substance: CEFTRIAXONE
     Indication: RESPIRATORY TRACT INFECTION
     Dosage: UNK
     Route: 065
     Dates: start: 20160217, end: 20160223
  22. RACECADOTRIL [Concomitant]
     Active Substance: RACECADOTRIL
     Indication: DIARRHOEA
     Dosage: 100 MILLIGRAM
     Route: 048
     Dates: start: 20170303
  23. OXYCODONE [Concomitant]
     Active Substance: OXYCODONE
     Indication: BONE PAIN
     Dosage: 240 MILLIGRAM, QD
     Route: 048
     Dates: start: 20170121
  24. AREDIA [Concomitant]
     Active Substance: PAMIDRONATE DISODIUM
     Indication: PROPHYLAXIS
     Dosage: 60 MILLIGRAM, MONTHLY
     Route: 041
     Dates: start: 20161208
  25. DARATUMUMAB [Concomitant]
     Active Substance: DARATUMUMAB
     Indication: PLASMA CELL MYELOMA
     Dosage: 1040 MILLIGRAM
     Route: 041
     Dates: start: 20141027
  26. NOVORAPID [Concomitant]
     Active Substance: INSULIN ASPART
     Indication: BLOOD GLUCOSE FLUCTUATION
     Dosage: 6 INTERNATIONAL UNIT
     Dates: start: 20180301
  27. INNOHEP [Concomitant]
     Active Substance: TINZAPARIN SODIUM
     Indication: THROMBOSIS PROPHYLAXIS
     Dosage: 4500 INTERNATIONAL UNIT, QD
     Route: 058
     Dates: start: 20161201
  28. ASPEGIC                            /00002701/ [Concomitant]
     Active Substance: ASPIRIN
     Indication: PRODUCT USED FOR UNKNOWN INDICATION
     Dosage: 100 MILLIGRAM
  29. TENORDATE [Concomitant]
     Active Substance: ATENOLOL\NIFEDIPINE
     Indication: HYPERTENSION
     Dosage: UNK
     Route: 048
  30. REVLIMID [Suspect]
     Active Substance: LENALIDOMIDE
     Dosage: 5 MILLIGRAM
     Route: 048
     Dates: start: 20130705, end: 20130926
  31. DARATUMUMAB [Concomitant]
     Active Substance: DARATUMUMAB
     Dosage: 1160 MILLIGRAM
     Route: 041
     Dates: start: 20161201
  32. DEXAMETHASONE. [Suspect]
     Active Substance: DEXAMETHASONE
     Dosage: UNK
     Route: 065
     Dates: start: 20130705, end: 20130926
  33. DEXAMETHASONE. [Suspect]
     Active Substance: DEXAMETHASONE
     Dosage: 20 MILLIGRAM, QW
     Route: 048
     Dates: start: 20141027
  34. REVLIMID [Suspect]
     Active Substance: LENALIDOMIDE
     Dosage: 10 MILLIGRAM, QD
     Route: 048
     Dates: start: 20161201
  35. DARATUMUMAB [Concomitant]
     Active Substance: DARATUMUMAB
     Dosage: 1072 MILLIGRAM, MONTHLY
     Route: 041
     Dates: start: 20180411
  36. PREDNISONE. [Concomitant]
     Active Substance: PREDNISONE
     Indication: RHEUMATOID ARTHRITIS
     Dosage: 10 MILLIGRAM
     Route: 065
     Dates: start: 20160318, end: 20160603
  37. ALPHA                              /00454801/ [Concomitant]
     Indication: NUTRITIONAL SUPPLEMENTATION
     Dosage: 0.25 MICROGRAM
     Route: 065
     Dates: start: 20160603, end: 20160603
  38. NOVORAPID [Concomitant]
     Active Substance: INSULIN ASPART
     Indication: DIABETES MELLITUS
     Dosage: UNK, INTERNATIONAL UNIT
     Route: 058
     Dates: start: 20161202
  39. LANTUS [Concomitant]
     Active Substance: INSULIN GLARGINE
     Indication: BLOOD GLUCOSE INCREASED
     Dosage: UNK
  40. PARACETAMOL [Concomitant]
     Active Substance: ACETAMINOPHEN
     Dosage: 3 GRAM, QD
     Route: 048
     Dates: start: 201611
  41. INEXIUM                            /01479302/ [Concomitant]
     Active Substance: ESOMEPRAZOLE MAGNESIUM
     Indication: OESOPHAGITIS
     Dosage: 20 MILLIGRAM, QD
     Route: 048
     Dates: start: 20170329
  42. EUPANTOL [Concomitant]
     Active Substance: PANTOPRAZOLE SODIUM
     Indication: PROPHYLAXIS
     Dosage: 20 MILLIGRAM
     Route: 065
     Dates: start: 20151217, end: 20160603
  43. CRESTOR [Concomitant]
     Active Substance: ROSUVASTATIN CALCIUM
     Indication: PROPHYLAXIS
     Dosage: 5 MILLIGRAM, QD
     Route: 048
     Dates: start: 20151022, end: 20160603

REACTIONS (3)
  - Hypertension [Recovered/Resolved]
  - Bladder transitional cell carcinoma stage 0 [Recovered/Resolved]
  - Haematuria [Recovered/Resolved]

NARRATIVE: CASE EVENT DATE: 20160223
